FAERS Safety Report 4663726-0 (Version None)
Quarter: 2005Q2

REPORT INFORMATION
  Report Type: 
  Country: None (occurrence: None)
  Receive Date: 20050516
  Receipt Date: 20050502
  Transmission Date: 20051028
  Serious: Yes (Other)
  Sender: FDA-Public Use
  Company Number: 2005070373

PATIENT
  Sex: Female
  Weight: 86.1834 kg

DRUGS (11)
  1. CELEBREX [Suspect]
     Indication: OSTEOARTHRITIS
     Dosage: 400 MG (200 MG, 2 IN 1 D), ORAL
     Route: 048
     Dates: start: 19991209
  2. BEXTRA [Suspect]
     Indication: OSTEOARTHRITIS
     Dosage: 40 MG (20 MG, 2 IN 1 D), ORAL
     Route: 048
     Dates: start: 20020501, end: 20040511
  3. ARTHROTEC [Suspect]
     Indication: OSTEOARTHRITIS
     Dosage: ORAL
     Route: 048
     Dates: start: 20050207, end: 20050101
  4. ATENOLOL [Concomitant]
  5. OLMESARTAN MEDOXOMIL (OLMESARTAN MEDOXOMIL) [Concomitant]
  6. HYDROCHLOROTHIAZIDE [Concomitant]
  7. MESALAMINE [Concomitant]
  8. EZETIMIBE (EZETIMIBE) [Concomitant]
  9. ESOMEPRAZOLE (ESOMEPRAZOLE) [Concomitant]
  10. OXYCODONE HYDROCHLORIDE AND ACETAMINOPHEN [Concomitant]
  11. ESTRADIOL [Concomitant]

REACTIONS (6)
  - ABDOMINAL PAIN [None]
  - COLITIS ULCERATIVE [None]
  - CONDITION AGGRAVATED [None]
  - DIARRHOEA [None]
  - HIP SURGERY [None]
  - PAIN IN EXTREMITY [None]
